FAERS Safety Report 21532558 (Version 2)
Quarter: 2022Q4

REPORT INFORMATION
  Report Type: Spontaneous
  Country: US (occurrence: None)
  Receive Date: 20221101
  Receipt Date: 20221101
  Transmission Date: 20230112
  Serious: No
  Sender: FDA-Public Use
  Company Number: US-Unichem Pharmaceuticals (USA) Inc-UCM202207-000663

PATIENT
  Age: 43 Year
  Sex: Female
  Weight: 81.64 kg

DRUGS (2)
  1. LAMOTRIGINE [Suspect]
     Active Substance: LAMOTRIGINE
     Indication: Bipolar disorder
     Dates: start: 202112, end: 20211220
  2. VENLAFAXINE [Concomitant]
     Active Substance: VENLAFAXINE HYDROCHLORIDE
     Indication: Bipolar disorder
     Dosage: UNKNOWN

REACTIONS (4)
  - Disturbance in attention [Recovered/Resolved]
  - Somnolence [Recovered/Resolved]
  - Asthenia [Recovered/Resolved]
  - Drug ineffective [Unknown]

NARRATIVE: CASE EVENT DATE: 20211201
